FAERS Safety Report 13170316 (Version 2)
Quarter: 2017Q1

REPORT INFORMATION
  Report Type: Report from Study
  Country: US (occurrence: US)
  Receive Date: 20170131
  Receipt Date: 20170320
  Transmission Date: 20170428
  Serious: Yes (Death, Other)
  Sender: FDA-Public Use
  Company Number: PHEH2014US019151

PATIENT
  Age: 63 Year
  Sex: Male

DRUGS (2)
  1. GLEEVEC [Suspect]
     Active Substance: IMATINIB MESYLATE
     Indication: SCLERODERMA
  2. GLEEVEC [Suspect]
     Active Substance: IMATINIB MESYLATE
     Indication: GRAFT VERSUS HOST DISEASE
     Dosage: 200 MG, QD
     Route: 048
     Dates: start: 20140801

REACTIONS (7)
  - Death [Fatal]
  - General physical health deterioration [Unknown]
  - Scar [Unknown]
  - Scleroderma [Unknown]
  - Product use issue [Unknown]
  - Disease progression [Unknown]
  - Muscle tightness [Unknown]

NARRATIVE: CASE EVENT DATE: 20140801
